FAERS Safety Report 4336756-6 (Version None)
Quarter: 2004Q2

REPORT INFORMATION
  Report Type: 
  Country: None (occurrence: None)
  Receive Date: 20040408
  Receipt Date: 20040326
  Transmission Date: 20050107
  Serious: Yes (Other)
  Sender: FDA-Public Use
  Company Number: US-JNJFOC-20040306395

PATIENT
  Sex: 0

DRUGS (3)
  1. TYLENOL W/ CODEINE [Suspect]
     Indication: DRUG USE FOR UNKNOWN INDICATION
  2. PAXIL [Suspect]
  3. SEROQUEL [Suspect]

REACTIONS (2)
  - CONVULSION [None]
  - MULTIPLE DRUG OVERDOSE [None]
